FAERS Safety Report 4696992-6 (Version None)
Quarter: 2005Q2

REPORT INFORMATION
  Report Type: 
  Country: None (occurrence: None)
  Receive Date: 20050620
  Receipt Date: 20050221
  Transmission Date: 20051028
  Serious: No
  Sender: FDA-Public Use
  Company Number: US-YAMANOUCHI-YPA20050080

PATIENT
  Age: 78 Year
  Sex: Male
  Weight: 61.2356 kg

DRUGS (1)
  1. VESICARE [Suspect]
     Dosage: 5 MG QD PO
     Route: 048
     Dates: start: 20050215, end: 20050221

REACTIONS (1)
  - RASH MACULO-PAPULAR [None]
